FAERS Safety Report 10089085 (Version 1)
Quarter: 2014Q2

REPORT INFORMATION
  Report Type: Spontaneous
  Country: US (occurrence: None)
  Receive Date: 20140418
  Receipt Date: 20140418
  Transmission Date: 20141212
  Serious: Yes (Other)
  Sender: FDA-Public Use
  Company Number: None

PATIENT
  Age: 73 Year
  Sex: Female
  Weight: 56.25 kg

DRUGS (1)
  1. HYDROMORPHONE HCL [Suspect]
     Indication: BREAKTHROUGH PAIN
     Route: 048
     Dates: start: 20140405, end: 20140410

REACTIONS (7)
  - Drug effect decreased [None]
  - Abdominal pain upper [None]
  - Heart rate irregular [None]
  - Extrasystoles [None]
  - Extrasystoles [None]
  - Vision blurred [None]
  - Headache [None]
